FAERS Safety Report 5060864-8 (Version None)
Quarter: 2006Q3

REPORT INFORMATION
  Report Type: 
  Country: None (occurrence: None)
  Receive Date: 20060719
  Receipt Date: 20060719
  Transmission Date: 20061208
  Serious: No
  Sender: FDA-Public Use
  Company Number: None

PATIENT
  Sex: Male
  Weight: 69.8539 kg

DRUGS (1)
  1. XOLAIR [Suspect]
     Indication: ASTHMA
     Dosage: 300MG Q2WEEKS SQ
     Route: 058
     Dates: start: 20060301, end: 20060718

REACTIONS (4)
  - DERMATITIS [None]
  - EXCORIATION [None]
  - HEADACHE [None]
  - PRURITUS [None]
